FAERS Safety Report 4799786-6 (Version None)
Quarter: 2005Q4

REPORT INFORMATION
  Report Type: 
  Country: None (occurrence: None)
  Receive Date: 20051011
  Receipt Date: 20051011
  Transmission Date: 20060501
  Serious: Yes (Other)
  Sender: FDA-Public Use
  Company Number: None

PATIENT
  Age: 7 Year
  Sex: Female
  Weight: 32.2054 kg

DRUGS (4)
  1. SINGULAIR [Suspect]
     Indication: ASTHMA
     Dosage: 4MG  ONCE DAY  PO
     Route: 048
     Dates: start: 20050910
  2. SINGULAIR [Suspect]
     Indication: ASTHMA
     Dosage: 4MG  ONCE DAY  PO
     Route: 048
     Dates: start: 20050911
  3. SINGULAIR [Suspect]
     Indication: ASTHMA
     Dosage: 4MG  ONCE DAY  PO
     Route: 048
     Dates: start: 20050912
  4. ADVAIR DISKUS 100/50 [Concomitant]

REACTIONS (1)
  - HALLUCINATION [None]
